FAERS Safety Report 8330968-2 (Version None)
Quarter: 2012Q2

REPORT INFORMATION
  Report Type: 
  Country: None (occurrence: None)
  Receive Date: 20120502
  Receipt Date: 20120404
  Transmission Date: 20120825
  Serious: No
  Sender: FDA-Public Use
  Company Number: US-AMGEN-USASP2011004215

PATIENT
  Age: 80 Year
  Sex: Female
  Weight: 59.864 kg

DRUGS (14)
  1. ENBREL [Suspect]
     Indication: RHEUMATOID ARTHRITIS
     Dosage: 50 MG, QWK
     Route: 058
     Dates: start: 20100901
  2. VITAMIN D2 [Concomitant]
     Dosage: 50000 IU, Q2WK
     Route: 048
     Dates: start: 20111004
  3. FOLIC ACID [Concomitant]
     Dosage: 3 MG, QD
     Route: 048
     Dates: start: 20120214
  4. SIMVASTATIN [Concomitant]
     Dosage: 40 MG, QHS
     Route: 048
  5. PREDNISONE [Concomitant]
     Dosage: 5 MG, BID
     Route: 048
     Dates: start: 20120214
  6. ALENDRONATE SODIUM [Concomitant]
     Dosage: 70 MG, QWK
     Route: 048
     Dates: start: 20120214
  7. HYDROCODONE BITARTRATE + ACETAMINOPHEN [Concomitant]
     Dosage: UNK UNK, PRN
     Route: 048
     Dates: start: 20120214
  8. MULTIVITAMIN                       /00097801/ [Concomitant]
     Dosage: UNK UNK, QD
     Dates: start: 20080125
  9. DILTIAZEM [Concomitant]
     Dosage: 240 MG, QD
     Route: 048
     Dates: start: 20110125
  10. POTASSIUM CHLORIDE [Concomitant]
     Dosage: 10 MEQ, QD
     Route: 048
  11. ACYCLOVIR [Concomitant]
     Dosage: 4 G, QD
  12. METHOTREXATE [Concomitant]
     Dosage: 2.5 MG, UNK
     Route: 048
     Dates: start: 20120214
  13. CALTRATE PLUS                      /01438001/ [Concomitant]
     Dosage: 60 MG, BID
     Route: 048
     Dates: start: 20100219
  14. HYDROCHLOROTHIAZIDE [Concomitant]
     Dosage: 50 MG, QD
     Route: 048

REACTIONS (8)
  - ARTHRALGIA [None]
  - RHEUMATOID ARTHRITIS [None]
  - JOINT SWELLING [None]
  - COUGH [None]
  - PAIN IN EXTREMITY [None]
  - MUSCULOSKELETAL STIFFNESS [None]
  - OEDEMA PERIPHERAL [None]
  - PNEUMONIA [None]
